FAERS Safety Report 10009301 (Version 2)
Quarter: 2014Q1

REPORT INFORMATION
  Report Type: Spontaneous
  Country: US (occurrence: US)
  Receive Date: 20140313
  Receipt Date: 20140321
  Transmission Date: 20141002
  Serious: Yes (Other)
  Sender: FDA-Public Use
  Company Number: CHPA2014US003730

PATIENT
  Age: 55 Year
  Sex: Female

DRUGS (3)
  1. EXCEDRIN EXTRA STRENGTH [Suspect]
     Indication: HEADACHE
     Dosage: 2 DF, UNK
     Route: 048
  2. EXCEDRIN MIGRAINE [Suspect]
     Indication: HEADACHE
     Dosage: 2 DF, UNK
     Route: 048
  3. EXCEDRIN MIGRAINE [Suspect]
     Indication: OFF LABEL USE
     Dosage: 4 TO 6 DF, UNK
     Route: 048
     Dates: start: 2012

REACTIONS (6)
  - Drug dependence [Not Recovered/Not Resolved]
  - Headache [Unknown]
  - Nausea [Unknown]
  - Abdominal discomfort [Unknown]
  - Therapeutic response unexpected [Unknown]
  - Drug ineffective [Unknown]
